FAERS Safety Report 6562229-6 (Version None)
Quarter: 2010Q1

REPORT INFORMATION
  Report Type: 
  Country: None (occurrence: None)
  Receive Date: 20100130
  Receipt Date: 20091103
  Transmission Date: 20100710
  Serious: No
  Sender: FDA-Public Use
  Company Number: US-ABBOTT-09P-163-0607039-00

PATIENT
  Sex: Female

DRUGS (4)
  1. HUMIRA [Suspect]
     Indication: PSORIASIS
     Dates: end: 20091026
  2. RIFAMPIN [Concomitant]
     Indication: DRUG USE FOR UNKNOWN INDICATION
  3. AQUAFOR [Concomitant]
     Indication: DRUG USE FOR UNKNOWN INDICATION
  4. ATARAX [Concomitant]
     Indication: DRUG USE FOR UNKNOWN INDICATION

REACTIONS (4)
  - DERMATITIS [None]
  - LICHENOID KERATOSIS [None]
  - RASH ERYTHEMATOUS [None]
  - RASH MACULO-PAPULAR [None]
